FAERS Safety Report 6723903-1 (Version None)
Quarter: 2010Q2

REPORT INFORMATION
  Report Type: 
  Country: None (occurrence: None)
  Receive Date: 20100513
  Receipt Date: 20100305
  Transmission Date: 20101027
  Serious: Yes (Death, Hospitalization, Other)
  Sender: FDA-Public Use
  Company Number: NL-ROCHE-677333

PATIENT
  Sex: Male
  Weight: 71 kg

DRUGS (15)
  1. VALGANCICLOVIR HCL [Suspect]
     Indication: DRUG USE FOR UNKNOWN INDICATION
     Route: 065
     Dates: start: 20091127, end: 20091212
  2. VALGANCICLOVIR HCL [Suspect]
     Route: 065
     Dates: end: 20100102
  3. RITUXIMAB [Suspect]
     Dosage: FORM: INFUSION, FREQUENCY: ONCE
     Route: 042
     Dates: start: 20090616
  4. AZATHIOPRINE [Suspect]
     Indication: DRUG USE FOR UNKNOWN INDICATION
     Dosage: INTERRUPTED ONE WEEK IN THE END OF SEPTEMBER 2009.
     Route: 065
     Dates: end: 20090901
  5. AZATHIOPRINE [Suspect]
     Route: 065
     Dates: start: 20091006, end: 20091205
  6. TACROLIMUS [Suspect]
     Indication: DRUG USE FOR UNKNOWN INDICATION
     Route: 065
     Dates: start: 20090617
  7. PREDNISONE TAB [Suspect]
     Indication: DRUG USE FOR UNKNOWN INDICATION
     Route: 065
     Dates: start: 20090616, end: 20100104
  8. SUCRALFATE [Concomitant]
     Dates: start: 20091201, end: 20100105
  9. METOPROLOL TARTRATE [Concomitant]
     Dates: start: 20080101
  10. CALCIUM CARBONATE [Concomitant]
     Dates: start: 20090622, end: 20100105
  11. ALFA CALCIDOL [Concomitant]
     Dates: start: 20090622, end: 20100105
  12. ATORVASTATIN [Concomitant]
     Dates: start: 20090904, end: 20100105
  13. PANTOPRAZOLE [Concomitant]
     Dates: start: 20090617
  14. MACROGOL [Concomitant]
     Dosage: 1 TIMES DAILY.
     Dates: start: 20090728, end: 20100105
  15. NIFEDIPINE [Concomitant]
     Dates: start: 20090813

REACTIONS (5)
  - CYTOMEGALOVIRUS INFECTION [None]
  - GASTRIC CANCER [None]
  - LARGE INTESTINAL ULCER [None]
  - LEUKOPENIA [None]
  - UROSEPSIS [None]
